FAERS Safety Report 4644974-2 (Version None)
Quarter: 2005Q2

REPORT INFORMATION
  Report Type: 
  Country: None (occurrence: None)
  Receive Date: 20050422
  Receipt Date: 20050408
  Transmission Date: 20051028
  Serious: Yes (Other)
  Sender: FDA-Public Use
  Company Number: 2005057521

PATIENT
  Age: 56 Year
  Sex: Female

DRUGS (1)
  1. BEXTRA [Suspect]
     Indication: FIBROMYALGIA

REACTIONS (25)
  - ABDOMINAL PAIN UPPER [None]
  - ACNE [None]
  - ALLERGY TO ANIMAL [None]
  - APHASIA [None]
  - BLISTER [None]
  - CONDITION AGGRAVATED [None]
  - DIARRHOEA [None]
  - ERYTHEMA [None]
  - EYE INJURY [None]
  - FALL [None]
  - GASTROINTESTINAL DISORDER [None]
  - HAEMORRHAGE [None]
  - HYPOKINESIA [None]
  - IMPAIRED SELF-CARE [None]
  - MEMORY IMPAIRMENT [None]
  - MIGRAINE [None]
  - OEDEMA PERIPHERAL [None]
  - ORAL DISCOMFORT [None]
  - ORAL MUCOSAL BLISTERING [None]
  - POLYP [None]
  - RECTAL HAEMORRHAGE [None]
  - SKIN INJURY [None]
  - STRESS [None]
  - TRANSIENT ISCHAEMIC ATTACK [None]
  - VOMITING [None]
